FAERS Safety Report 4667956-3 (Version None)
Quarter: 2005Q2

REPORT INFORMATION
  Report Type: 
  Country: None (occurrence: None)
  Receive Date: 20050520
  Receipt Date: 20050511
  Transmission Date: 20051028
  Serious: Yes (Other)
  Sender: FDA-Public Use
  Company Number: 2005AP02748

PATIENT
  Age: 63 Year
  Sex: Male

DRUGS (9)
  1. XYLOCAINE POLYAMP [Suspect]
     Indication: NERVE BLOCK
     Route: 004
  2. SOSEGON [Suspect]
     Route: 042
  3. PENTAZOCINE LACTATE [Concomitant]
     Route: 042
  4. DIAZEPAM [Concomitant]
     Route: 042
  5. NICARDIPINE HCL [Concomitant]
     Route: 042
  6. ENALAPRIL MALEATE [Concomitant]
     Route: 048
  7. AMLODIN [Concomitant]
     Route: 048
  8. GLICLAZIDE [Concomitant]
     Route: 048
  9. CERCINE [Concomitant]
     Route: 042

REACTIONS (2)
  - ATRIAL FIBRILLATION [None]
  - TACHYCARDIA [None]
